FAERS Safety Report 24244462 (Version 1)
Quarter: 2024Q3

REPORT INFORMATION
  Report Type: Spontaneous
  Country: US (occurrence: None)
  Receive Date: 20240822
  Receipt Date: 20240822
  Transmission Date: 20241017
  Serious: No
  Sender: Public
  Company Number: None

PATIENT
  Age: 65 Year
  Sex: Female

DRUGS (1)
  1. INSULIN HUMAN [Suspect]
     Active Substance: INSULIN HUMAN

REACTIONS (5)
  - Dyspnoea [None]
  - Productive cough [None]
  - Blood glucose increased [None]
  - Underdose [None]
  - Incorrect dose administered [None]
